FAERS Safety Report 6794993-5 (Version None)
Quarter: 2010Q2

REPORT INFORMATION
  Report Type: 
  Country: None (occurrence: None)
  Receive Date: 20100625
  Receipt Date: 20100621
  Transmission Date: 20101027
  Serious: Yes (Hospitalization)
  Sender: FDA-Public Use
  Company Number: US-SANOFI-AVENTIS-2010SA035831

PATIENT
  Age: 87 Year
  Sex: Male
  Weight: 89.5 kg

DRUGS (4)
  1. TAXOTERE [Suspect]
     Indication: PROSTATE CANCER
     Route: 041
     Dates: start: 20091202, end: 20091202
  2. TAXOTERE [Suspect]
     Route: 041
     Dates: start: 20100608, end: 20100608
  3. BLINDED THERAPY [Suspect]
     Indication: PROSTATE CANCER
     Route: 048
     Dates: start: 20091202, end: 20100618
  4. PREDNISONE [Suspect]
     Indication: PROSTATE CANCER
     Route: 048
     Dates: start: 20091202, end: 20100618

REACTIONS (5)
  - HAEMOGLOBIN [None]
  - HYPONATRAEMIA [None]
  - HYPOXIA [None]
  - LEUKOPENIA [None]
  - PNEUMONIA [None]
